FAERS Safety Report 4380273-4 (Version None)
Quarter: 2004Q2

REPORT INFORMATION
  Report Type: 
  Country: None (occurrence: None)
  Receive Date: 20040616
  Receipt Date: 20040616
  Transmission Date: 20050107
  Serious: No
  Sender: FDA-Public Use
  Company Number: None

PATIENT
  Age: 87 Year
  Sex: Male
  Weight: 68.4932 kg

DRUGS (1)
  1. TAXOL [Suspect]

REACTIONS (1)
  - DEVICE FAILURE [None]
